FAERS Safety Report 7347217-4 (Version None)
Quarter: 2011Q1

REPORT INFORMATION
  Report Type: 
  Country: None (occurrence: None)
  Receive Date: 20110311
  Receipt Date: 20110303
  Transmission Date: 20110831
  Serious: Yes (Other)
  Sender: FDA-Public Use
  Company Number: US-PFIZER INC-2011013608

PATIENT
  Sex: Male
  Weight: 113 kg

DRUGS (6)
  1. LEVOXYL [Concomitant]
     Dosage: 0.1 MG, 1X/DAY
  2. ZOLOFT [Concomitant]
     Dosage: 200 MG, 1X/DAY
  3. NORVASC [Concomitant]
     Indication: HYPERTENSION
     Dosage: 2.5 MG, 1X/DAY
  4. SUTENT [Suspect]
     Indication: RENAL CELL CARCINOMA
     Dosage: 50 MG, 1X/DAY
     Route: 048
     Dates: start: 20100601
  5. ZESTRIL [Concomitant]
     Indication: HYPERTENSION
     Dosage: 20 MG, 1X/DAY
  6. LIPITOR [Concomitant]
     Dosage: 10 MG, 1X/DAY

REACTIONS (4)
  - LABORATORY TEST ABNORMAL [None]
  - COLITIS [None]
  - INTESTINAL PERFORATION [None]
  - BLOOD CREATININE INCREASED [None]
